FAERS Safety Report 15865471 (Version 1)
Quarter: 2019Q1

REPORT INFORMATION
  Report Type: Other
  Country: FR (occurrence: FR)
  Receive Date: 20190125
  Receipt Date: 20190125
  Transmission Date: 20190417
  Serious: No
  Sender: FDA-Public Use
  Company Number: FR-DENTSPLY-2019SCDP000038

PATIENT
  Age: 25 Year
  Sex: Female
  Weight: 55 kg

DRUGS (1)
  1. PRILOCAINE AND LIDOCAINE [Suspect]
     Active Substance: LIDOCAINE\PRILOCAINE
     Indication: LOCAL ANAESTHESIA
     Dosage: 1 DF, UNK
     Route: 003
     Dates: start: 20181108

REACTIONS (1)
  - Application site discolouration [None]

NARRATIVE: CASE EVENT DATE: 20181108
